FAERS Safety Report 5487355-4 (Version None)
Quarter: 2007Q4

REPORT INFORMATION
  Report Type: 
  Country: None (occurrence: None)
  Receive Date: 20071016
  Receipt Date: 20071004
  Transmission Date: 20080405
  Serious: Yes (Hospitalization, Other)
  Sender: FDA-Public Use
  Company Number: US-PFIZER INC-2006101236

PATIENT
  Sex: Female
  Weight: 74.8 kg

DRUGS (16)
  1. CELEBREX [Suspect]
     Indication: PAIN
     Route: 048
  2. BEXTRA [Suspect]
     Indication: PAIN
     Route: 048
     Dates: start: 20021214
  3. VIOXX [Suspect]
     Indication: ARTHRALGIA
     Route: 048
  4. SKELAXIN [Concomitant]
     Indication: PAIN
     Dates: start: 20020101, end: 20030101
  5. ULTRACET [Concomitant]
     Indication: PAIN
     Dates: start: 20020101, end: 20030101
  6. HYDROCODONE BITARTRATE + ACETAMINOPHEN [Concomitant]
     Dates: start: 19980101, end: 20040101
  7. PROPOXYPHENE NAPSYLATE W/ ACETAMINOPHEN [Concomitant]
     Dates: start: 19980101, end: 20040101
  8. TYLENOL W/ CODEINE [Concomitant]
     Dates: start: 19990720, end: 20020316
  9. ULTRAM [Concomitant]
     Dates: start: 20001214, end: 20010113
  10. COZAAR [Concomitant]
     Indication: HYPERTENSION
     Dates: start: 19980727, end: 19981212
  11. COZAAR [Concomitant]
     Indication: CARDIAC DISORDER
  12. AVAPRO [Concomitant]
     Indication: HYPERTENSION
     Dates: start: 19981201, end: 20021102
  13. AVAPRO [Concomitant]
     Indication: CARDIAC DISORDER
  14. ESTRADIOL [Concomitant]
     Indication: HORMONE THERAPY
     Dates: start: 19980727, end: 20030501
  15. PREMARIN [Concomitant]
     Indication: HORMONE THERAPY
     Dates: start: 19981103, end: 20011223
  16. SLOW-MAG [Concomitant]
     Indication: MAGNESIUM DEFICIENCY
     Dates: start: 19990910, end: 19991110

REACTIONS (3)
  - CEREBROVASCULAR ACCIDENT [None]
  - DEPRESSION [None]
  - MYOCARDIAL INFARCTION [None]
